FAERS Safety Report 6855999-0 (Version None)
Quarter: 2010Q3

REPORT INFORMATION
  Report Type: 
  Country: None (occurrence: None)
  Receive Date: 20100716
  Receipt Date: 20100716
  Transmission Date: 20110219
  Serious: Yes (Other)
  Sender: FDA-Public Use
  Company Number: None

PATIENT
  Age: 59 Year
  Sex: Female
  Weight: 63.05 kg

DRUGS (3)
  1. LANSOPRAZOLE [Suspect]
     Indication: GASTROOESOPHAGEAL REFLUX DISEASE
     Dosage: 30 MG 1CE DAILY MOUTH
     Route: 048
  2. DILANTIN [Concomitant]
  3. MYSOLINE [Concomitant]

REACTIONS (2)
  - DIARRHOEA [None]
  - HEART RATE INCREASED [None]
